FAERS Safety Report 8832485 (Version 2)
Quarter: 2013Q2

REPORT INFORMATION
  Report Type: Spontaneous
  Country: CA (occurrence: CA)
  Receive Date: 20121010
  Receipt Date: 20130409
  Transmission Date: 20140414
  Serious: Yes (Hospitalization)
  Sender: FDA-Public Use
  Company Number: CA-ELI_LILLY_AND_COMPANY-CA201210001529

PATIENT
  Sex: Male
  Weight: 64 kg

DRUGS (1)
  1. ALIMTA [Suspect]
     Indication: LUNG NEOPLASM MALIGNANT
     Dosage: 850 MG, EVERY 3 WEEKS
     Route: 042
     Dates: end: 20120224

REACTIONS (2)
  - Cough [Not Recovered/Not Resolved]
  - Disease progression [Unknown]
